FAERS Safety Report 7547447-2 (Version None)
Quarter: 2011Q2

REPORT INFORMATION
  Report Type: 
  Country: None (occurrence: None)
  Receive Date: 20110614
  Receipt Date: 20110603
  Transmission Date: 20111010
  Serious: Yes (Hospitalization, Other)
  Sender: FDA-Public Use
  Company Number: CA-ELI_LILLY_AND_COMPANY-CA201104000816

PATIENT
  Age: 62 Year
  Sex: Female
  Weight: 63.4 kg

DRUGS (6)
  1. FORTEO [Suspect]
     Dosage: 20 UG, QD
     Route: 058
  2. ANTIHYPERTENSIVES [Concomitant]
     Indication: HYPERTENSION
  3. VITAMIN D [Concomitant]
  4. FORTEO [Suspect]
     Indication: OSTEOPOROSIS
     Dosage: 20 UG, QD
     Route: 058
     Dates: start: 20091218
  5. PREDNISONE [Concomitant]
     Indication: ARTHRITIS
  6. CALCIUM CARBONATE [Concomitant]

REACTIONS (3)
  - UPPER LIMB FRACTURE [None]
  - EYE DISORDER [None]
  - FALL [None]
